FAERS Safety Report 8104328-3 (Version None)
Quarter: 2012Q1

REPORT INFORMATION
  Report Type: 
  Country: None (occurrence: None)
  Receive Date: 20120130
  Receipt Date: 20120120
  Transmission Date: 20120608
  Serious: Yes (Hospitalization)
  Sender: FDA-Public Use
  Company Number: US-BAYER-2011-106079

PATIENT
  Age: 22 Year
  Sex: Female
  Weight: 88.435 kg

DRUGS (1)
  1. YAZ [Suspect]
     Indication: DYSMENORRHOEA
     Dosage: UNK
     Route: 048
     Dates: start: 20060701, end: 20090601

REACTIONS (8)
  - CHOLECYSTITIS CHRONIC [None]
  - ANXIETY [None]
  - ABDOMINAL PAIN UPPER [None]
  - ANHEDONIA [None]
  - DEPRESSION [None]
  - DEFORMITY [None]
  - INJURY [None]
  - GALLBLADDER DISORDER [None]
